FAERS Safety Report 5634570-2 (Version None)
Quarter: 2008Q1

REPORT INFORMATION
  Report Type: 
  Country: None (occurrence: None)
  Receive Date: 20080222
  Receipt Date: 20080211
  Transmission Date: 20080703
  Serious: Yes (Other)
  Sender: FDA-Public Use
  Company Number: PHHY2008AU01631

PATIENT
  Sex: Female

DRUGS (2)
  1. MORPHINE [Suspect]
  2. STALEVO 100 [Suspect]
     Dosage: 150 MG, Q3H

REACTIONS (3)
  - HALLUCINATION [None]
  - HYSTERECTOMY [None]
  - RESTLESS LEGS SYNDROME [None]
